FAERS Safety Report 5141053-5 (Version None)
Quarter: 2006Q4

REPORT INFORMATION
  Report Type: 
  Country: None (occurrence: None)
  Receive Date: 20061026
  Receipt Date: 20061017
  Transmission Date: 20070319
  Serious: Yes (Hospitalization, Other)
  Sender: FDA-Public Use
  Company Number: 2006111242

PATIENT
  Age: 70 Year
  Sex: Female
  Weight: 50 kg

DRUGS (11)
  1. LIPITOR [Suspect]
     Indication: HYPERCHOLESTEROLAEMIA
     Dosage: 10 MG (1 IN 1 D), ORAL
     Route: 048
     Dates: start: 20040716, end: 20060905
  2. LIPITOR [Suspect]
     Indication: HYPERLIPIDAEMIA
     Dosage: 10 MG (1 IN 1 D), ORAL
     Route: 048
     Dates: start: 20040716, end: 20060905
  3. MICARDIS [Suspect]
     Indication: BLOOD PRESSURE
     Dosage: 40 MG (40 MG, 1 IN 1 D), ORAL
     Route: 048
     Dates: start: 20041015
  4. CARVEDILOL [Suspect]
     Indication: BLOOD PRESSURE
     Dosage: 10 MG (10 MG, 1 IN 1 D), ORAL
     Route: 048
     Dates: start: 20051021
  5. AMLODIPINE [Concomitant]
  6. VALSARTAN [Concomitant]
  7. MEIACT (CEFDITOREN PIVOXIL) [Concomitant]
  8. FOIPAN (CAMOSTAT MESILATE) [Concomitant]
  9. MIRACLID (ULINASTATIN) [Concomitant]
  10. LACTATED RINGER'S [Concomitant]
  11. SINLESTAL (PROBUCOL) [Concomitant]

REACTIONS (10)
  - ALANINE AMINOTRANSFERASE INCREASED [None]
  - ASPARTATE AMINOTRANSFERASE INCREASED [None]
  - BLOOD PRESSURE INADEQUATELY CONTROLLED [None]
  - BLOOD TRIGLYCERIDES INCREASED [None]
  - CONDITION AGGRAVATED [None]
  - ECZEMA [None]
  - GAMMA-GLUTAMYLTRANSFERASE INCREASED [None]
  - HEPATIC FUNCTION ABNORMAL [None]
  - HYPERCHOLESTEROLAEMIA [None]
  - PRURITUS [None]
